FAERS Safety Report 9003952 (Version 2)
Quarter: 2013Q1

REPORT INFORMATION
  Report Type: Spontaneous
  Country: US (occurrence: US)
  Receive Date: 20130108
  Receipt Date: 20130114
  Transmission Date: 20140127
  Serious: No
  Sender: FDA-Public Use
  Company Number: US-ASTRAZENECA-2013SE00404

PATIENT
  Age: 74 Year
  Sex: Male
  Weight: 104.3 kg

DRUGS (2)
  1. SYMBICORT [Suspect]
     Indication: ASTHMA
     Dosage: 80/4.5 MCG ONE PUFF TWO TIMES A DAY
     Route: 055
     Dates: end: 20121230
  2. MANY MEDICATIONS [Concomitant]

REACTIONS (4)
  - Influenza [Unknown]
  - Cardiac failure congestive [Unknown]
  - Cough [Unknown]
  - Off label use [Recovered/Resolved]
